FAERS Safety Report 23218817 (Version 1)
Quarter: 2023Q4

REPORT INFORMATION
  Report Type: Spontaneous
  Country: US (occurrence: None)
  Receive Date: 20231122
  Receipt Date: 20231122
  Transmission Date: 20240110
  Serious: Yes (Disabling, Other)
  Sender: FDA-Public Use
  Company Number: None

PATIENT
  Age: 56 Year
  Sex: Male

DRUGS (2)
  1. TIANEPTINE [Suspect]
     Active Substance: TIANEPTINE
     Indication: Back pain
     Dosage: FREQUENCY : EVERY 6 HOURS;?
     Route: 048
     Dates: start: 202107
  2. TIANEPTINE [Suspect]
     Active Substance: TIANEPTINE
     Indication: Neuropathy peripheral

REACTIONS (4)
  - Drug dependence [None]
  - Withdrawal syndrome [None]
  - Irritability [None]
  - Anger [None]

NARRATIVE: CASE EVENT DATE: 20210701
